FAERS Safety Report 16074264 (Version 10)
Quarter: 2021Q1

REPORT INFORMATION
  Report Type: Report from Study
  Country: US (occurrence: US)
  Receive Date: 20190314
  Receipt Date: 20210217
  Transmission Date: 20210419
  Serious: No
  Sender: FDA-Public Use
  Company Number: PHEH2019US010701

PATIENT
  Age: 29 Year
  Sex: Male

DRUGS (4)
  1. COSENTYX [Suspect]
     Active Substance: SECUKINUMAB
     Route: 058
  2. COSENTYX [Suspect]
     Active Substance: SECUKINUMAB
     Indication: PSORIATIC ARTHROPATHY
     Dosage: 300 MG, QMO
     Route: 058
  3. COSENTYX [Suspect]
     Active Substance: SECUKINUMAB
     Dosage: 300 MG, QMO
     Route: 058
  4. COSENTYX [Suspect]
     Active Substance: SECUKINUMAB
     Indication: PSORIASIS
     Dosage: 300 MG, QW
     Route: 058

REACTIONS (17)
  - Abdominal pain upper [Not Recovered/Not Resolved]
  - Food poisoning [Recovering/Resolving]
  - Vomiting [Recovering/Resolving]
  - Accident at work [Unknown]
  - Injection site pain [Recovered/Resolved]
  - Pyrexia [Recovering/Resolving]
  - Cold sweat [Recovering/Resolving]
  - Depression [Unknown]
  - Hyperhidrosis [Recovering/Resolving]
  - Nausea [Recovering/Resolving]
  - Stress [Unknown]
  - Weight increased [Unknown]
  - Psoriasis [Unknown]
  - Headache [Recovering/Resolving]
  - Scar [Recovered/Resolved]
  - Joint injury [Unknown]
  - Abdominal discomfort [Recovered/Resolved]

NARRATIVE: CASE EVENT DATE: 201907
